FAERS Safety Report 23357977 (Version 2)
Quarter: 2024Q1

REPORT INFORMATION
  Report Type: Spontaneous
  Country: US (occurrence: US)
  Receive Date: 20240102
  Receipt Date: 20240222
  Transmission Date: 20240409
  Serious: Yes (Hospitalization, Other)
  Sender: FDA-Public Use
  Company Number: US-BRISTOL-MYERS SQUIBB COMPANY-2023-187643

PATIENT
  Age: 79 Year
  Sex: Female
  Weight: 66.22 kg

DRUGS (2)
  1. REVLIMID [Suspect]
     Active Substance: LENALIDOMIDE
     Indication: Plasma cell myeloma
     Dosage: 2W, 1W OFF
     Route: 048
  2. REVLIMID [Suspect]
     Active Substance: LENALIDOMIDE
     Dosage: 2W ON, 1W OFF
     Route: 048
     Dates: start: 20231001

REACTIONS (4)
  - Respiratory syncytial virus infection [Unknown]
  - Pneumonia [Unknown]
  - Off label use [Unknown]
  - Arthritis [Unknown]
